FAERS Safety Report 8251407-6 (Version None)
Quarter: 2012Q1

REPORT INFORMATION
  Report Type: 
  Country: None (occurrence: None)
  Receive Date: 20120321
  Receipt Date: 20110517
  Transmission Date: 20120608
  Serious: No
  Sender: FDA-Public Use
  Company Number: PHHY2011US43076

PATIENT
  Age: 14 Year
  Sex: Male
  Weight: 42.2 kg

DRUGS (1)
  1. ILARIS [Suspect]
     Dosage: 180 MG, FOR EVERY 8 WEEKS, SUBCUTANEOUS
     Route: 058
     Dates: start: 20110325

REACTIONS (1)
  - HEADACHE [None]
